FAERS Safety Report 6225362-4 (Version None)
Quarter: 2009Q2

REPORT INFORMATION
  Report Type: 
  Country: None (occurrence: None)
  Receive Date: 20090612
  Receipt Date: 20090414
  Transmission Date: 20091009
  Serious: No
  Sender: FDA-Public Use
  Company Number: US-ABBOTT-09P-163-0568463-00

PATIENT
  Sex: Female
  Weight: 65.83 kg

DRUGS (3)
  1. HUMIRA [Suspect]
     Indication: RHEUMATOID ARTHRITIS
     Dates: start: 20090413
  2. WELLBUTRIN XL [Concomitant]
     Indication: DEPRESSION
  3. CLONOPIN [Concomitant]
     Indication: ANXIETY

REACTIONS (7)
  - ABDOMINAL PAIN [None]
  - EMOTIONAL DISORDER [None]
  - HEADACHE [None]
  - INJECTION SITE IRRITATION [None]
  - NAUSEA [None]
  - OROPHARYNGEAL PAIN [None]
  - RHINORRHOEA [None]
